FAERS Safety Report 15548486 (Version 2)
Quarter: 2019Q3

REPORT INFORMATION
  Report Type: Report from Study
  Country: US (occurrence: US)
  Receive Date: 20181025
  Receipt Date: 20190726
  Transmission Date: 20191004
  Serious: No
  Sender: FDA-Public Use
  Company Number: US-IPSEN BIOPHARMACEUTICALS, INC.-2017-09667

PATIENT
  Age: 12 Year
  Sex: Male
  Weight: 34.92 kg

DRUGS (8)
  1. ALBUTEROL. [Concomitant]
     Active Substance: ALBUTEROL
     Dosage: AS NEEDED
  2. MULTIVITAMIN [Concomitant]
     Active Substance: VITAMINS
  3. SYMBICORT [Concomitant]
     Active Substance: BUDESONIDE\FORMOTEROL FUMARATE DIHYDRATE
  4. ZYRTEC [Concomitant]
     Active Substance: CETIRIZINE HYDROCHLORIDE
     Dosage: AS NEEDED
  5. NUTROPIN [Suspect]
     Active Substance: SOMATROPIN
     Dosage: NUSPIN 20
     Route: 058
  6. NUTROPIN [Suspect]
     Active Substance: SOMATROPIN
     Indication: GROWTH HORMONE DEFICIENCY
     Dosage: NUSPIN 20
     Route: 058
     Dates: start: 20141108
  7. NUTROPIN [Suspect]
     Active Substance: SOMATROPIN
     Dosage: (NUSPIN 20) 1.2 TO 1.4 MG DAILY (0.26MG/KG/WEEK)
     Route: 058
  8. SINGULAIR [Concomitant]
     Active Substance: MONTELUKAST SODIUM

REACTIONS (7)
  - Varicocele [Unknown]
  - Vitamin D deficiency [Unknown]
  - Goitre [Unknown]
  - Asthma [Unknown]
  - Abdominal pain upper [Unknown]
  - Speech disorder [Unknown]
  - Headache [Recovered/Resolved]

NARRATIVE: CASE EVENT DATE: 20150601
